FAERS Safety Report 7966005-9 (Version None)
Quarter: 2011Q4

REPORT INFORMATION
  Report Type: 
  Country: None (occurrence: None)
  Receive Date: 20111208
  Receipt Date: 20111201
  Transmission Date: 20120403
  Serious: Yes (Other)
  Sender: FDA-Public Use
  Company Number: CHPA2011US017233

PATIENT
  Age: 62 Year
  Sex: Male

DRUGS (1)
  1. MAALOX ADV MAXIMUM STRENGTH ANTACID/ANTIGAS [Suspect]
     Indication: GASTROOESOPHAGEAL REFLUX DISEASE
     Dosage: UNK , UNK
     Route: 048
     Dates: start: 20110101

REACTIONS (4)
  - DRUG DEPENDENCE [None]
  - INCORRECT DRUG ADMINISTRATION DURATION [None]
  - THERAPEUTIC RESPONSE UNEXPECTED [None]
  - WRONG TECHNIQUE IN DRUG USAGE PROCESS [None]
